FAERS Safety Report 6532386-6 (Version None)
Quarter: 2010Q1

REPORT INFORMATION
  Report Type: 
  Country: None (occurrence: None)
  Receive Date: 20100108
  Receipt Date: 20091125
  Transmission Date: 20100710
  Serious: Yes (Other)
  Sender: FDA-Public Use
  Company Number: JP-GENENTECH-296592

PATIENT
  Sex: Male

DRUGS (3)
  1. RANIBIZUMAB [Suspect]
     Indication: MACULAR DEGENERATION
     Dosage: 0.05 ML, UNK
     Route: 031
     Dates: start: 20090515
  2. LEVOFLOXACIN [Concomitant]
     Indication: DRUG USE FOR UNKNOWN INDICATION
     Dosage: UNK
     Dates: start: 20090501
  3. LEVOFLOXACIN [Concomitant]
     Dosage: UNK
     Dates: end: 20090601

REACTIONS (1)
  - OCULAR VASCULAR DISORDER [None]
